FAERS Safety Report 15623766 (Version 6)
Quarter: 2019Q1

REPORT INFORMATION
  Report Type: Spontaneous
  Country: US (occurrence: US)
  Receive Date: 20181115
  Receipt Date: 20190205
  Transmission Date: 20190417
  Serious: No
  Sender: FDA-Public Use
  Company Number: US-UNITED THERAPEUTICS-UNT-2018-018722

PATIENT
  Age: 64 Year
  Sex: Male
  Weight: 104.94 kg

DRUGS (6)
  1. REMODULIN [Suspect]
     Active Substance: TREPROSTINIL
     Dosage: 0.0125 ?G/KG, CONTINUING
     Route: 058
     Dates: start: 20181108
  2. REMODULIN [Suspect]
     Active Substance: TREPROSTINIL
     Dosage: 0.02 ?G/KG, CONTINUING
     Route: 058
  3. REMODULIN [Suspect]
     Active Substance: TREPROSTINIL
     Indication: PULMONARY ARTERIAL HYPERTENSION
     Dosage: 0.014 ?G/KG, CONTINUING
     Route: 058
     Dates: start: 20180814
  4. REMODULIN [Suspect]
     Active Substance: TREPROSTINIL
     Dosage: 0.0155 ?G/KG, CONTINUING
     Route: 058
  5. ADEMPAS [Concomitant]
     Active Substance: RIOCIGUAT
     Indication: PRODUCT USED FOR UNKNOWN INDICATION
     Dosage: UNK
     Route: 065
  6. OPSUMIT [Concomitant]
     Active Substance: MACITENTAN
     Indication: PRODUCT USED FOR UNKNOWN INDICATION
     Dosage: UNK
     Route: 065

REACTIONS (13)
  - Hypotension [Recovering/Resolving]
  - Abdominal discomfort [Unknown]
  - Diarrhoea [Not Recovered/Not Resolved]
  - Peripheral swelling [Unknown]
  - Constipation [Not Recovered/Not Resolved]
  - Infusion site pain [Not Recovered/Not Resolved]
  - Infusion site discharge [Recovered/Resolved]
  - Dyspnoea exertional [Not Recovered/Not Resolved]
  - Infusion site haemorrhage [Recovered/Resolved]
  - Weight increased [Unknown]
  - Infusion site erythema [Not Recovered/Not Resolved]
  - Flatulence [Unknown]
  - Dysgeusia [Unknown]

NARRATIVE: CASE EVENT DATE: 2018
